FAERS Safety Report 6056896-3 (Version None)
Quarter: 2009Q1

REPORT INFORMATION
  Report Type: 
  Country: None (occurrence: None)
  Receive Date: 20090129
  Receipt Date: 20090119
  Transmission Date: 20090719
  Serious: Yes (Hospitalization)
  Sender: FDA-Public Use
  Company Number: B0555122A

PATIENT
  Age: 74 Year
  Sex: Male

DRUGS (2)
  1. AMOXICILLIN AND CLAVULANATE POTASSIUM [Suspect]
     Indication: ERYSIPELAS
     Route: 065
     Dates: start: 20080831, end: 20080922
  2. CIFLOX [Concomitant]
     Indication: ERYSIPELAS
     Route: 065
     Dates: start: 20080831, end: 20080909

REACTIONS (2)
  - ECZEMA [None]
  - TOXIC SKIN ERUPTION [None]
